FAERS Safety Report 19826646 (Version 13)
Quarter: 2023Q4

REPORT INFORMATION
  Report Type: Report from Study
  Country: DE (occurrence: DE)
  Receive Date: 20210914
  Receipt Date: 20231024
  Transmission Date: 20240109
  Serious: Yes (Hospitalization)
  Sender: FDA-Public Use
  Company Number: DE-SA-2020SA105002

PATIENT
  Age: 86 Year
  Sex: Male
  Weight: 130 kg

DRUGS (6)
  1. DUPILUMAB [Suspect]
     Active Substance: DUPILUMAB
     Indication: Dermatitis atopic
     Dosage: UNK, QOW
     Route: 058
     Dates: start: 20200227
  2. DUPILUMAB [Suspect]
     Active Substance: DUPILUMAB
     Indication: Asthma
  3. SPIRONOLACTONE [Suspect]
     Active Substance: SPIRONOLACTONE
     Indication: Hypertension
     Dosage: UNK
     Route: 048
     Dates: end: 20200507
  4. BISOPROLOL [Suspect]
     Active Substance: BISOPROLOL\BISOPROLOL FUMARATE
     Indication: Hypertension
     Dosage: UNK
     Route: 048
     Dates: end: 20200507
  5. DIETARY SUPPLEMENT\MINERALS\VITAMINS [Suspect]
     Active Substance: DIETARY SUPPLEMENT\MINERALS\VITAMINS
     Dosage: UNK
  6. VITAMIN B CO [Concomitant]
     Dosage: UNK

REACTIONS (16)
  - Cardiac failure [Not Recovered/Not Resolved]
  - Hepatic cirrhosis [Recovering/Resolving]
  - Hyperkalaemia [Recovered/Resolved]
  - Rib fracture [Not Recovered/Not Resolved]
  - General physical condition abnormal [Recovered/Resolved]
  - Spinal stenosis [Not Recovered/Not Resolved]
  - Gait disturbance [Not Recovered/Not Resolved]
  - Urosepsis [Not Recovered/Not Resolved]
  - Atrial fibrillation [Recovered/Resolved]
  - Atrioventricular block [Not Recovered/Not Resolved]
  - Atrial fibrillation [Recovered/Resolved]
  - Fall [Recovering/Resolving]
  - Dizziness [Recovered/Resolved]
  - Head injury [Recovered/Resolved]
  - Pruritus [Not Recovered/Not Resolved]
  - Urinary incontinence [Not Recovered/Not Resolved]

NARRATIVE: CASE EVENT DATE: 20200313
